APPROVED DRUG PRODUCT: VENTOLIN
Active Ingredient: ALBUTEROL SULFATE
Strength: EQ 0.5% BASE **Federal Register determination that product was not discontinued or withdrawn for safety or effectiveness reasons**
Dosage Form/Route: SOLUTION;INHALATION
Application: N019269 | Product #002
Applicant: GLAXOSMITHKLINE
Approved: Jan 16, 1987 | RLD: No | RS: No | Type: DISCN